FAERS Safety Report 15049106 (Version 2)
Quarter: 2018Q2

REPORT INFORMATION
  Report Type: Spontaneous
  Country: JP (occurrence: JP)
  Receive Date: 20180622
  Receipt Date: 20180629
  Transmission Date: 20180711
  Serious: Yes (Other)
  Sender: FDA-Public Use
  Company Number: PHJP2018JP012556

PATIENT
  Age: 57 Year
  Sex: Male

DRUGS (1)
  1. GILENYA [Suspect]
     Active Substance: FINGOLIMOD HYDROCHLORIDE
     Indication: MULTIPLE SCLEROSIS
     Dosage: UNK
     Route: 048

REACTIONS (10)
  - Toxic shock syndrome [Unknown]
  - Multiple organ dysfunction syndrome [Recovering/Resolving]
  - Skin exfoliation [Recovering/Resolving]
  - Rash macular [Unknown]
  - Renal disorder [Recovering/Resolving]
  - Pyrexia [Unknown]
  - Staphylococcal infection [Unknown]
  - Diarrhoea [Unknown]
  - Blood pressure decreased [Recovering/Resolving]
  - Liver disorder [Recovering/Resolving]
